FAERS Safety Report 16243956 (Version 1)
Quarter: 2019Q2

REPORT INFORMATION
  Report Type: Spontaneous
  Country: DE (occurrence: DE)
  Receive Date: 20190426
  Receipt Date: 20190426
  Transmission Date: 20190711
  Serious: Yes (Hospitalization, Other)
  Sender: FDA-Public Use
  Company Number: DE-ABBVIE-19P-062-2757324-00

PATIENT
  Age: 29 Year
  Sex: Female

DRUGS (4)
  1. PERGOVERIS [Suspect]
     Active Substance: FOLLITROPIN\LUTROPIN ALFA
     Indication: ASSISTED REPRODUCTIVE TECHNOLOGY
     Dosage: 150 INTERNATIONAL UNIT, QD
     Route: 065
  2. HCG [Suspect]
     Active Substance: GONADOTROPHIN, CHORIONIC
     Indication: ASSISTED REPRODUCTIVE TECHNOLOGY
  3. ENANTONE - GYN 3.75MG [Suspect]
     Active Substance: LEUPROLIDE ACETATE
     Indication: ASSISTED REPRODUCTIVE TECHNOLOGY
     Dosage: UNK
     Route: 065
  4. HCG [Suspect]
     Active Substance: GONADOTROPHIN, CHORIONIC
     Indication: OVULATION INDUCTION
     Dosage: 5000 INTERNATIONAL UNIT
     Route: 065

REACTIONS (6)
  - Waist circumference increased [Unknown]
  - Dyspnoea [Unknown]
  - Ovarian hyperstimulation syndrome [Unknown]
  - Nausea [Unknown]
  - Abdominal pain lower [Unknown]
  - Ascites [Unknown]

NARRATIVE: CASE EVENT DATE: 20190405
